FAERS Safety Report 18087782 (Version 1)
Quarter: 2020Q3

REPORT INFORMATION
  Report Type: Spontaneous
  Country: US (occurrence: US)
  Receive Date: 20200729
  Receipt Date: 20200729
  Transmission Date: 20201103
  Serious: Yes (Life-Threatening, Hospitalization)
  Sender: FDA-Public Use
  Company Number: US-PFIZER INC-2020287215

PATIENT
  Age: 39 Year
  Sex: Female

DRUGS (1)
  1. AMLODIPINE BESILATE [Suspect]
     Active Substance: AMLODIPINE BESYLATE
     Dosage: 600 MG

REACTIONS (5)
  - Hypotension [Unknown]
  - Blood lactic acid increased [Unknown]
  - Sinus tachycardia [Unknown]
  - Acidosis [Unknown]
  - Intentional overdose [Unknown]
